FAERS Safety Report 19486198 (Version 5)
Quarter: 2022Q1

REPORT INFORMATION
  Report Type: Spontaneous
  Country: PR (occurrence: US)
  Receive Date: 20210702
  Receipt Date: 20220302
  Transmission Date: 20220423
  Serious: Yes (Other)
  Sender: FDA-Public Use
  Company Number: PR-JNJFOC-20210658040

PATIENT
  Age: 61 Year
  Sex: Female

DRUGS (37)
  1. ELMIRON [Suspect]
     Active Substance: PENTOSAN POLYSULFATE SODIUM
     Indication: Cystitis interstitial
     Dosage: 100 MG CAPSULES, TWO CAPSULES TWICE A DAY
     Route: 048
     Dates: start: 201402, end: 2020
  2. ELMIRON [Suspect]
     Active Substance: PENTOSAN POLYSULFATE SODIUM
     Route: 048
     Dates: start: 201403
  3. OMEPRAZOLE [Concomitant]
     Active Substance: OMEPRAZOLE
     Indication: Dyspepsia
     Dates: start: 201402
  4. OMEPRAZOLE [Concomitant]
     Active Substance: OMEPRAZOLE
     Indication: Dyspepsia
  5. MONTELUKAST [Concomitant]
     Active Substance: MONTELUKAST SODIUM
     Indication: Asthma
     Dates: start: 201402
  6. MACROBID [Concomitant]
     Active Substance: NITROFURANTOIN\NITROFURANTOIN MONOHYDRATE
     Indication: Prophylaxis
     Dates: start: 201408, end: 202012
  7. FLUOXETINE [Concomitant]
     Active Substance: FLUOXETINE HYDROCHLORIDE
     Indication: Anxiety
     Dates: start: 201402, end: 202012
  8. AMIODARONE [Concomitant]
     Active Substance: AMIODARONE
     Indication: Arrhythmia
     Dates: start: 201806, end: 202012
  9. AMITRIPTYLINE [Concomitant]
     Active Substance: AMITRIPTYLINE
     Indication: Depression
     Dates: start: 201408
  10. BENAZEPRIL [Concomitant]
     Active Substance: BENAZEPRIL HYDROCHLORIDE
     Indication: Hypertension
     Dates: start: 201904, end: 202012
  11. CLONIDINE [Concomitant]
     Active Substance: CLONIDINE
     Indication: Hypertension
     Dates: start: 201812, end: 202012
  12. ATENOLOL [Concomitant]
     Active Substance: ATENOLOL
     Indication: Hypertension
     Dates: start: 201402, end: 202012
  13. ATORVASTATIN [Concomitant]
     Active Substance: ATORVASTATIN
     Indication: Blood cholesterol decreased
     Dates: start: 201904, end: 202012
  14. ACETAMINOPHEN\BUTABARBITAL\CAFFEINE [Concomitant]
     Active Substance: ACETAMINOPHEN\BUTABARBITAL\CAFFEINE
     Indication: Analgesic therapy
     Dates: start: 201402, end: 202012
  15. CARAFATE [Concomitant]
     Active Substance: SUCRALFATE
     Indication: Prophylaxis
     Dates: start: 201812, end: 202012
  16. DESLORATADINE [Concomitant]
     Active Substance: DESLORATADINE
     Indication: Hypersensitivity
     Dates: start: 201812, end: 202012
  17. DICYCLOMINE HYDROCHLORIDE [Concomitant]
     Active Substance: DICYCLOMINE HYDROCHLORIDE
     Indication: Irritable bowel syndrome
     Dates: start: 201703, end: 202012
  18. DILTIAZEM [Concomitant]
     Active Substance: DILTIAZEM
     Indication: Hypertension
     Dates: start: 201906, end: 202012
  19. POTASSIUM CHLORIDE [Concomitant]
     Active Substance: POTASSIUM CHLORIDE
     Indication: Blood potassium decreased
     Dates: start: 201904, end: 202007
  20. PRASUGREL HCL [Concomitant]
     Indication: Cerebrovascular accident
     Dates: start: 201904, end: 202012
  21. PRASUGREL HCL [Concomitant]
     Indication: Ischaemic heart disease prophylaxis
  22. VIBERZI [Concomitant]
     Active Substance: ELUXADOLINE
     Indication: Irritable bowel syndrome
     Dates: start: 201703, end: 202012
  23. ALPRAZOLAM [Concomitant]
     Active Substance: ALPRAZOLAM
     Indication: Anxiety
     Dates: start: 201402, end: 201806
  24. AMLODIPINE BESYLATE AND BENAZEPRIL HYDROCHLORIDE [Concomitant]
     Active Substance: AMLODIPINE BESYLATE\BENAZEPRIL HYDROCHLORIDE
     Indication: Hypertension
     Dates: start: 201402, end: 201806
  25. RANITIDINE [Concomitant]
     Active Substance: RANITIDINE
     Indication: Dyspepsia
     Dates: start: 201402, end: 201912
  26. RANITIDINE [Concomitant]
     Active Substance: RANITIDINE
     Indication: Dyspepsia
  27. PROMETHAZINE [Concomitant]
     Active Substance: PROMETHAZINE HYDROCHLORIDE
     Indication: Multiple allergies
     Dates: start: 201408, end: 201806
  28. VERAPAMIL [Concomitant]
     Active Substance: VERAPAMIL HYDROCHLORIDE
     Indication: Hypertension
     Dates: start: 201806, end: 201912
  29. MISOPROSTOL [Concomitant]
     Active Substance: MISOPROSTOL
     Indication: Prophylaxis
     Dates: start: 201402, end: 201806
  30. MECLIZINE HYDROCHLORIDE [Concomitant]
     Active Substance: MECLIZINE HYDROCHLORIDE
     Indication: Motion sickness
     Dates: start: 201402, end: 201806
  31. CETIRIZINE HYDROCHLORIDE [Concomitant]
     Active Substance: CETIRIZINE HYDROCHLORIDE
     Indication: Multiple allergies
     Dates: start: 201402, end: 201806
  32. DICLOFENAC POTASSIUM [Concomitant]
     Active Substance: DICLOFENAC POTASSIUM
     Indication: Analgesic therapy
     Dates: start: 201402, end: 201806
  33. CHLORDIAZEPOXIDE [Concomitant]
     Active Substance: CHLORDIAZEPOXIDE
     Indication: Anxiety
     Dates: start: 201904, end: 201912
  34. CHLORDIAZEPOXIDE;CLIDINIUM [Concomitant]
     Indication: Prophylaxis
     Dates: start: 201408, end: 201806
  35. DEPLIN [LEVOMEFOLIC ACID] [Concomitant]
     Indication: Nutritional supplementation
     Dates: start: 201402, end: 201609
  36. MOBIC [Concomitant]
     Active Substance: MELOXICAM
     Indication: Arthritis
     Dates: start: 201609, end: 201806
  37. PENNSAID [Concomitant]
     Active Substance: DICLOFENAC SODIUM
     Indication: Arthritis
     Dates: start: 201703, end: 201806

REACTIONS (4)
  - Macular degeneration [Not Recovered/Not Resolved]
  - Maculopathy [Not Recovered/Not Resolved]
  - Off label use [Unknown]
  - Product use issue [Unknown]

NARRATIVE: CASE EVENT DATE: 20140201
